FAERS Safety Report 4579689-2 (Version None)
Quarter: 2005Q1

REPORT INFORMATION
  Report Type: 
  Country: None (occurrence: None)
  Receive Date: 20050210
  Receipt Date: 20050210
  Transmission Date: 20050727
  Serious: Yes (Disabling)
  Sender: FDA-Public Use
  Company Number: None

PATIENT
  Age: 23 Year
  Sex: Female
  Weight: 52.1637 kg

DRUGS (4)
  1. PHENERGAN [Suspect]
     Indication: MIGRAINE
     Dosage: INJECTION   INTRAMUSCULAR
     Route: 030
     Dates: start: 20041222, end: 20041222
  2. PHENERGAN [Suspect]
     Indication: NAUSEA
     Dosage: INJECTION   INTRAMUSCULAR
     Route: 030
     Dates: start: 20041222, end: 20041222
  3. IMITREX [Concomitant]
  4. PREDNISONE [Concomitant]

REACTIONS (10)
  - DEFORMITY [None]
  - DIZZINESS [None]
  - INFUSION SITE BRUISING [None]
  - INJECTION SITE HAEMORRHAGE [None]
  - INJECTION SITE REACTION [None]
  - MUSCLE DISORDER [None]
  - OEDEMA PERIPHERAL [None]
  - PAIN IN EXTREMITY [None]
  - SOMNOLENCE [None]
  - TENDERNESS [None]
